FAERS Safety Report 5712070-9 (Version None)
Quarter: 2008Q2

REPORT INFORMATION
  Report Type: 
  Country: None (occurrence: None)
  Receive Date: 20080418
  Receipt Date: 20080410
  Transmission Date: 20081010
  Serious: Yes (Hospitalization)
  Sender: FDA-Public Use
  Company Number: GXKR2008US03501

PATIENT
  Age: 44 Year
  Sex: Female

DRUGS (6)
  1. CYCLOSPORINE [Suspect]
     Indication: IMMUNOSUPPRESSION
  2. TACROLIMUS [Suspect]
     Indication: IMMUNOSUPPRESSION
     Dosage: 6-9 NG/ML
  3. PREDNISONE TAB [Concomitant]
  4. MYCOPHENOLATE MOFETIL [Concomitant]
  5. SIROLIMUS (SIROLIMUS) [Concomitant]
  6. ANTITHYMOCYTE IMMUNOGLUBULIN (RABBIT) (ANTITHYMOCYTE IMMUNOGLOBULIN (R [Concomitant]

REACTIONS (6)
  - BLOOD AMYLASE INCREASED [None]
  - BLOOD LACTATE DEHYDROGENASE INCREASED [None]
  - COMPLICATIONS OF TRANSPLANTED KIDNEY [None]
  - LIPASE INCREASED [None]
  - PANCREAS TRANSPLANT [None]
  - THROMBOTIC MICROANGIOPATHY [None]
